FAERS Safety Report 18091202 (Version 4)
Quarter: 2020Q3

REPORT INFORMATION
  Report Type: Spontaneous
  Country: AU (occurrence: AU)
  Receive Date: 20200730
  Receipt Date: 20200915
  Transmission Date: 20201103
  Serious: Yes (Other)
  Sender: FDA-Public Use
  Company Number: AU-GLAXOSMITHKLINE-AU2020141362

PATIENT

DRUGS (1)
  1. BREO ELLIPTA [Suspect]
     Active Substance: FLUTICASONE FUROATE\VILANTEROL TRIFENATATE
     Indication: PRODUCT USED FOR UNKNOWN INDICATION
     Dosage: UNK, 200/25 MCG

REACTIONS (6)
  - Haemorrhage [Unknown]
  - Dyspnoea [Unknown]
  - Drug ineffective [Unknown]
  - Product dispensing error [Unknown]
  - Product administration error [Unknown]
  - Product dose omission issue [Unknown]
